FAERS Safety Report 25599949 (Version 1)
Quarter: 2025Q3

REPORT INFORMATION
  Report Type: Spontaneous
  Country: NP (occurrence: NP)
  Receive Date: 20250724
  Receipt Date: 20250724
  Transmission Date: 20251020
  Serious: No
  Sender: ALKEM
  Company Number: NP-ALKEM LABORATORIES LIMITED-NP-ALKEM-2025-06173

PATIENT

DRUGS (1)
  1. ITRACONAZOLE [Suspect]
     Active Substance: ITRACONAZOLE
     Indication: Product used for unknown indication
     Route: 065

REACTIONS (1)
  - Drug eruption [Unknown]
